FAERS Safety Report 10177712 (Version 1)
Quarter: 2014Q2

REPORT INFORMATION
  Report Type: Spontaneous
  Country: DE (occurrence: DE)
  Receive Date: 20140516
  Receipt Date: 20140516
  Transmission Date: 20141212
  Serious: Yes (Other)
  Sender: FDA-Public Use
  Company Number: DE-PFIZER INC-2014134204

PATIENT
  Sex: Female

DRUGS (1)
  1. GABAPENTIN [Suspect]
     Dosage: 2 X 400MG

REACTIONS (3)
  - Cerebral haemorrhage [Unknown]
  - Hypertensive crisis [Unknown]
  - Fall [Unknown]
